FAERS Safety Report 6186206-2 (Version None)
Quarter: 2009Q2

REPORT INFORMATION
  Report Type: 
  Country: None (occurrence: None)
  Receive Date: 20090507
  Receipt Date: 20090507
  Transmission Date: 20091009
  Serious: Yes (Life-Threatening, Hospitalization)
  Sender: FDA-Public Use
  Company Number: None

PATIENT
  Age: 48 Year
  Sex: Male
  Weight: 71.6683 kg

DRUGS (1)
  1. CHANTIX [Suspect]

REACTIONS (2)
  - ROAD TRAFFIC ACCIDENT [None]
  - SUICIDE ATTEMPT [None]
